FAERS Safety Report 9392662 (Version 1)
Quarter: 2013Q3

REPORT INFORMATION
  Report Type: Spontaneous
  Country: US (occurrence: None)
  Receive Date: 20130708
  Receipt Date: 20130708
  Transmission Date: 20140515
  Serious: Yes (Hospitalization)
  Sender: FDA-Public Use
  Company Number: None

PATIENT
  Age: 57 Year
  Sex: Female
  Weight: 92.2 kg

DRUGS (1)
  1. CISPLATIN [Suspect]

REACTIONS (2)
  - Chills [None]
  - Pyrexia [None]
